FAERS Safety Report 21042467 (Version 1)
Quarter: 2022Q3

REPORT INFORMATION
  Report Type: Spontaneous
  Country: US (occurrence: None)
  Receive Date: 20220702
  Receipt Date: 20220702
  Transmission Date: 20221026
  Serious: Yes (Death)
  Sender: FDA-Public Use
  Company Number: None

PATIENT
  Age: 93 Year
  Sex: Female
  Weight: 52.8 kg

DRUGS (10)
  1. PAXLOVID [Suspect]
     Active Substance: NIRMATRELVIR\RITONAVIR
     Indication: COVID-19
     Dosage: FREQUENCY : TWICE A DAY;?
     Route: 048
     Dates: start: 20220628, end: 20220629
  2. LOSARTAN [Concomitant]
     Active Substance: LOSARTAN
  3. NIFEDIPINE [Concomitant]
     Active Substance: NIFEDIPINE
  4. ZYRTEC [Concomitant]
     Active Substance: CETIRIZINE HYDROCHLORIDE
  5. LASIX [Concomitant]
     Active Substance: FUROSEMIDE
  6. METFORMIN [Concomitant]
     Active Substance: METFORMIN HYDROCHLORIDE
  7. SYNTHROID [Concomitant]
     Active Substance: LEVOTHYROXINE SODIUM
  8. ALVESCO [Concomitant]
     Active Substance: CICLESONIDE
  9. GLIPIZIDE [Concomitant]
     Active Substance: GLIPIZIDE
  10. METOPROLOL [Concomitant]
     Active Substance: METOPROLOL

REACTIONS (5)
  - Nausea [None]
  - Haematemesis [None]
  - Hypoxia [None]
  - Bradycardia [None]
  - Cardiac arrest [None]

NARRATIVE: CASE EVENT DATE: 20220701
